FAERS Safety Report 5711720-0 (Version None)
Quarter: 2008Q2

REPORT INFORMATION
  Report Type: 
  Country: None (occurrence: None)
  Receive Date: 20080421
  Receipt Date: 20080414
  Transmission Date: 20081010
  Serious: Yes (Hospitalization)
  Sender: FDA-Public Use
  Company Number: PHHO2004FR05136

PATIENT
  Age: 75 Year
  Sex: Female
  Weight: 80 kg

DRUGS (1)
  1. TAMOXIFEN CITRATE [Suspect]
     Indication: BREAST CANCER
     Route: 048
     Dates: start: 20020724, end: 20040301

REACTIONS (4)
  - ENDOCERVICAL CURETTAGE [None]
  - ENDOMETRIAL CANCER [None]
  - METRORRHAGIA [None]
  - UTERINE POLYP [None]
